FAERS Safety Report 14322009 (Version 2)
Quarter: 2017Q4

REPORT INFORMATION
  Report Type: Report from Study
  Country: BE (occurrence: BE)
  Receive Date: 20171225
  Receipt Date: 20171228
  Transmission Date: 20180321
  Serious: Yes (Death, Hospitalization)
  Sender: FDA-Public Use
  Company Number: BE-ROCHE-1508084

PATIENT
  Age: 79 Year
  Sex: Male
  Weight: 57 kg

DRUGS (14)
  1. VENETOCLAX. [Suspect]
     Active Substance: VENETOCLAX
     Indication: B-CELL LYMPHOMA
     Dosage: MOST RECENT DOSE ON 08/DEC/2014
     Route: 048
     Dates: start: 20141201
  2. ACYCLOVIR. [Concomitant]
     Active Substance: ACYCLOVIR
     Dosage: 2 X 0.5 (8AM AND 8PM)
     Route: 065
     Dates: start: 201211
  3. BURINEX [Concomitant]
     Active Substance: BUMETANIDE
     Dosage: 1 X 1 (8AM)
     Route: 065
     Dates: start: 20140918
  4. OMEPRAZOLE. [Concomitant]
     Active Substance: OMEPRAZOLE
     Indication: PROPHYLAXIS
     Route: 065
     Dates: start: 20141129
  5. LORAMET [Concomitant]
     Active Substance: LORMETAZEPAM
     Indication: INSOMNIA
     Dosage: 1 X 1 (10PM)
     Route: 065
     Dates: start: 201308
  6. FRAXIPARINE [Concomitant]
     Active Substance: NADROPARIN CALCIUM
     Indication: ATRIAL FIBRILLATION
     Dosage: 0.6 CC 2 X 1 (8AM AND 8PM)
     Route: 065
     Dates: start: 20141113, end: 20141205
  7. STRUMAZOL [Concomitant]
     Active Substance: METHIMAZOLE
     Indication: HYPERTHYROIDISM
     Route: 065
     Dates: start: 20141203
  8. D-CURE [Concomitant]
     Active Substance: CHOLECALCIFEROL
     Indication: VITAMIN D DEFICIENCY
     Dosage: EVERY FIRST OF THE MONTH
     Route: 065
     Dates: start: 20140313
  9. FASTURTEC [Concomitant]
     Active Substance: RASBURICASE
     Route: 065
     Dates: start: 20141201, end: 20141205
  10. BISOPROLOL [Concomitant]
     Active Substance: BISOPROLOL
     Indication: CARDIOVASCULAR EVENT PROPHYLAXIS
     Dosage: 2 X 1 (8AM AND 8PM)
     Route: 065
     Dates: start: 20101202
  11. FRAXIPARINE [Concomitant]
     Active Substance: NADROPARIN CALCIUM
     Route: 065
     Dates: start: 20141205
  12. MOTILIUM [Concomitant]
     Active Substance: DOMPERIDONE
     Indication: PROPHYLAXIS OF NAUSEA AND VOMITING
     Dosage: 3 X 1 (8AM, 12AM, 4PM)?30 MINUTES BEFORE FOOD INTAKE
     Route: 065
     Dates: start: 20141117
  13. LASIX [Concomitant]
     Active Substance: FUROSEMIDE
     Indication: OEDEMA PERIPHERAL
     Route: 065
     Dates: start: 20141127
  14. RITUXIMAB. [Suspect]
     Active Substance: RITUXIMAB
     Indication: B-CELL LYMPHOMA
     Dosage: ON DAY 1 OF EVERY 28 DAY CYCLLE.?MOST RECENT DOSE ON 08/DEC/2017 (611 MG)
     Route: 042
     Dates: start: 20141201

REACTIONS (3)
  - Pneumothorax [Unknown]
  - Pulmonary haemorrhage [Fatal]
  - Cardiac arrest [Fatal]

NARRATIVE: CASE EVENT DATE: 20141209
